FAERS Safety Report 19642790 (Version 3)
Quarter: 2021Q3

REPORT INFORMATION
  Report Type: Spontaneous
  Country: US (occurrence: US)
  Receive Date: 20210730
  Receipt Date: 20210924
  Transmission Date: 20211014
  Serious: Yes (Hospitalization, Disabling, Other)
  Sender: FDA-Public Use
  Company Number: US-PFIZER INC-202100932320

PATIENT
  Age: 45 Year
  Sex: Female
  Weight: 45.36 kg

DRUGS (2)
  1. DILANTIN [Suspect]
     Active Substance: PHENYTOIN
     Indication: GENERALISED TONIC-CLONIC SEIZURE
     Dosage: 300 MG, 1X/DAY (AT BEDTIME)
     Route: 048
  2. DILANTIN [Suspect]
     Active Substance: PHENYTOIN
     Dosage: UNK
     Dates: start: 2001

REACTIONS (18)
  - Hyperthyroidism [Unknown]
  - Jaw fracture [Unknown]
  - Fall [Unknown]
  - Impaired work ability [Unknown]
  - Encephalopathy [Unknown]
  - Cerebellar atrophy [Unknown]
  - Asthenia [Unknown]
  - Balance disorder [Unknown]
  - Coordination abnormal [Unknown]
  - Pneumonia viral [Unknown]
  - Hip fracture [Unknown]
  - Feeling abnormal [Unknown]
  - Feeling drunk [Unknown]
  - Toxicity to various agents [Unknown]
  - Intentional product misuse [Unknown]
  - Nystagmus [Unknown]
  - Sepsis [Unknown]
  - Muscular weakness [Unknown]

NARRATIVE: CASE EVENT DATE: 2011
